FAERS Safety Report 15473039 (Version 12)
Quarter: 2019Q2

REPORT INFORMATION
  Report Type: Report from Study
  Country: DE (occurrence: DE)
  Receive Date: 20181008
  Receipt Date: 20190528
  Transmission Date: 20190711
  Serious: Yes (Death, Other)
  Sender: FDA-Public Use
  Company Number: DE-MYLANLABS-2018M1073892

PATIENT
  Age: 58 Year
  Sex: Female
  Weight: 54 kg

DRUGS (73)
  1. AUGMENTAN                          /00756801/ [Suspect]
     Active Substance: AMOXICILLIN\CLAVULANATE POTASSIUM
     Indication: INFECTION
     Dosage: 3 DOSAGE FORM, QD
     Route: 048
     Dates: start: 19950117, end: 19950117
  2. METALCAPTASE                       /00062501/ [Suspect]
     Active Substance: PENICILLAMINE
     Indication: SCLERODERMA
     Dosage: UNK
     Route: 048
     Dates: start: 19941229, end: 19950124
  3. PURSENNIDE                         /00142207/ [Suspect]
     Active Substance: SENNA LEAF
     Indication: CONSTIPATION
     Dosage: UNK
     Route: 048
     Dates: start: 19950113, end: 19950114
  4. ERYPO                              /00928301/ [Suspect]
     Active Substance: ERYTHROPOIETIN
     Indication: ANAEMIA
     Dosage: 2000 INTERNATIONAL UNIT, QD
     Route: 058
     Dates: start: 19950103, end: 19950103
  5. DULCOLAX (BISACODYL) [Suspect]
     Active Substance: BISACODYL
     Indication: CONSTIPATION
     Dosage: UNK
     Route: 054
  6. TAVEGIL   SOLUTION FOR INJECTION  /00137202/ [Concomitant]
     Indication: HYPERSENSITIVITY
     Dosage: UNK
     Route: 042
     Dates: start: 19950117, end: 19950117
  7. SOLU-DECORTIN-H LIFE [Concomitant]
     Indication: HYPERSENSITIVITY
     Dosage: UNK
     Route: 042
     Dates: start: 19950117, end: 19950117
  8. ANTRA                              /00661201/ [Concomitant]
     Active Substance: OMEPRAZOLE
     Indication: ULCER
  9. TRAMAL [Concomitant]
     Active Substance: TRAMADOL
     Indication: PAIN
     Dosage: UNK
     Route: 048
     Dates: start: 19950118, end: 19950121
  10. SODIUM CITRATE. [Concomitant]
     Active Substance: SODIUM CITRATE
     Indication: METABOLIC ACIDOSIS
     Dosage: 4 DOSAGE FORM, QD
     Route: 048
     Dates: start: 19950119, end: 19950131
  11. TRAMAL [Concomitant]
     Active Substance: TRAMADOL
     Indication: PAIN
     Dosage: UNK
     Route: 048
     Dates: start: 19950118, end: 19950120
  12. XANEF   TABLET                            /00574902/ [Suspect]
     Active Substance: ENALAPRIL MALEATE
     Indication: HYPERTENSION
     Dosage: 1 DOSAGE FORM, QD
     Route: 048
     Dates: start: 19941230, end: 19950124
  13. DULCOLAX (BISACODYL) [Suspect]
     Active Substance: BISACODYL
     Dosage: UNK
     Route: 054
     Dates: start: 19950115, end: 19950115
  14. CALCIUM CITRATE [Concomitant]
     Active Substance: CALCIUM CITRATE
     Indication: METABOLIC ACIDOSIS
     Dosage: 4 DOSAGE FORM, QD
     Route: 048
     Dates: start: 19950119, end: 19950331
  15. LOPIRIN COR [Concomitant]
     Active Substance: CAPTOPRIL
     Indication: HYPERTENSION
     Dosage: 1 DOSAGE FORM, QD
     Route: 048
     Dates: start: 19941229, end: 19941229
  16. IMODIUM [Concomitant]
     Active Substance: LOPERAMIDE HYDROCHLORIDE
     Indication: DIARRHOEA
     Dosage: UNK
     Route: 048
     Dates: start: 19950118, end: 19950119
  17. TEMGESIC [Concomitant]
     Active Substance: BUPRENORPHINE HYDROCHLORIDE
     Indication: PAIN
     Dosage: UNK
     Route: 060
     Dates: start: 19950124, end: 19950124
  18. NATRIUMHYDROGENCARBONAT [Concomitant]
     Active Substance: SODIUM BICARBONATE
     Indication: ACIDOSIS
     Dosage: UNK
     Route: 042
     Dates: start: 19950118, end: 19950118
  19. ISOPTIN [Concomitant]
     Active Substance: VERAPAMIL HYDROCHLORIDE
     Dosage: 3 DOSAGE FORM, QD
     Route: 048
     Dates: start: 19941229, end: 19950124
  20. METAMIZOLE SODIUM [Suspect]
     Active Substance: METAMIZOLE SODIUM
     Indication: PYREXIA
     Dosage: UNK
     Route: 042
     Dates: start: 19941228, end: 19941228
  21. METAMIZOLE SODIUM [Suspect]
     Active Substance: METAMIZOLE SODIUM
     Dosage: UNK
     Route: 042
     Dates: start: 19940228, end: 19940228
  22. ERYPO                              /00928301/ [Suspect]
     Active Substance: ERYTHROPOIETIN
     Dosage: 2000 INTERNATIONAL UNIT, QD
     Route: 058
     Dates: start: 19950107, end: 19950107
  23. LASIX [Suspect]
     Active Substance: FUROSEMIDE
     Indication: RENAL FAILURE
     Dosage: 1 DOSAGE FORM, QD
     Route: 048
     Dates: start: 19950113, end: 19950331
  24. ARELIX      TABLET                        /00630801/ [Concomitant]
     Indication: HYPERTENSION
     Dosage: 1 DOSAGE FORM, QD
     Route: 048
     Dates: start: 19941228, end: 19941228
  25. ZANTAC [Concomitant]
     Active Substance: RANITIDINE HYDROCHLORIDE
     Indication: HYPERSENSITIVITY
     Dosage: UNK
     Route: 042
     Dates: start: 19950117, end: 19950117
  26. ERYPO                              /00928301/ [Suspect]
     Active Substance: ERYTHROPOIETIN
     Dosage: 2000 INTERNATIONAL UNIT, QD
     Route: 058
     Dates: start: 19950110, end: 19950110
  27. IOXITALAMATE MEGLUMINE [Suspect]
     Active Substance: MEGLUMINE IOXITHALAMATE
     Indication: X-RAY
     Dosage: UNK
     Route: 048
     Dates: start: 19950115, end: 19950115
  28. ERYTHROPOIETIN HUMAN [Suspect]
     Active Substance: ERYTHROPOIETIN
     Dosage: 2000 INTERNATIONAL UNIT, QD
     Route: 058
     Dates: start: 19950110, end: 19950110
  29. ROHYPNOL TABLET [Suspect]
     Active Substance: FLUNITRAZEPAM
     Indication: SLEEP DISORDER
     Dosage: 1 DOSAGE FORM, QD
     Route: 048
     Dates: start: 19950114, end: 19950123
  30. TAZOBAC  SOLUTION FOR INJECTION [Suspect]
     Active Substance: PIPERACILLIN SODIUM\TAZOBACTAM SODIUM
     Dosage: 1 DOSAGE FORM, QD
     Route: 042
     Dates: end: 19950101
  31. NACL [Concomitant]
     Active Substance: SODIUM CHLORIDE
     Indication: HYPONATRAEMIA
     Dosage: UNK
     Route: 042
     Dates: start: 19950117, end: 19950117
  32. URBASON                            /00049601/ [Concomitant]
     Active Substance: METHYLPREDNISOLONE
     Indication: SCLERODERMA
     Dosage: UNK
     Route: 048
     Dates: start: 19950331
  33. SAROTEN [Concomitant]
     Active Substance: AMITRIPTYLINE
     Indication: DEPRESSION
     Dosage: UNK
     Route: 048
     Dates: start: 19950124, end: 19950331
  34. ERYTHROCINE                        /00020901/ [Concomitant]
     Active Substance: ERYTHROMYCIN
     Indication: INFECTION
     Dosage: 2 DOSAGE FORM, QD
     Route: 042
     Dates: start: 19950118, end: 19950118
  35. ACETOLYT                           /02287701/ [Concomitant]
     Indication: METABOLIC ACIDOSIS
     Dosage: 2 DOSAGE FORM
     Route: 048
     Dates: start: 19950119, end: 19950331
  36. NOVALGIN (METAMIZOLE SODIUM) [Suspect]
     Active Substance: METAMIZOLE SODIUM
     Indication: PYREXIA
     Dosage: UNK
     Route: 042
     Dates: start: 19941228, end: 19941228
  37. FLUIMUCIL [Suspect]
     Active Substance: ACETYLCYSTEINE
     Indication: COUGH
     Dosage: 1 DOSAGE FORM, QD
     Route: 048
     Dates: start: 19950117, end: 19950118
  38. IMUREK                             /00001501/ [Suspect]
     Active Substance: AZATHIOPRINE
     Dosage: UNK
     Route: 048
     Dates: start: 19950119, end: 19950119
  39. ERYPO                              /00928301/ [Suspect]
     Active Substance: ERYTHROPOIETIN
     Dosage: 2000 INTERNATIONAL UNIT, QD
     Route: 058
     Dates: start: 19950114, end: 19950114
  40. TELEBRIX                           /00871501/ [Suspect]
     Active Substance: IOXITALAMIC ACID
     Indication: X-RAY
     Dosage: UNK
     Route: 048
     Dates: start: 19950115, end: 19950115
  41. ERYTHROPOIETIN HUMAN [Suspect]
     Active Substance: ERYTHROPOIETIN
     Dosage: 2000 INTERNATIONAL UNIT, QD
     Route: 058
     Dates: start: 19950117, end: 19950117
  42. URBASON                            /00049601/ [Concomitant]
     Active Substance: METHYLPREDNISOLONE
     Dosage: UNK
     Route: 048
     Dates: start: 19950331
  43. SAROTEN [Concomitant]
     Active Substance: AMITRIPTYLINE
     Dosage: UNK
     Route: 048
     Dates: start: 19950124, end: 19950124
  44. DIFLUCAN [Concomitant]
     Active Substance: FLUCONAZOLE
     Indication: FUNGAL INFECTION
     Dosage: 200 MILLIGRAM, QD
     Route: 048
     Dates: start: 19950120, end: 19950124
  45. PASPERTIN                          /00041902/ [Concomitant]
     Active Substance: METOCLOPRAMIDE HYDROCHLORIDE
     Indication: NAUSEA
     Dosage: UNK
     Route: 048
     Dates: start: 19941228, end: 19941228
  46. REMESTAN [Suspect]
     Active Substance: TEMAZEPAM
     Indication: SLEEP DISORDER
     Dosage: 1 DOSAGE FORM, QD
     Route: 048
     Dates: end: 19950113
  47. BEN-U-RON [Suspect]
     Active Substance: ACETAMINOPHEN
     Indication: PYREXIA
     Dosage: UNK
     Route: 054
     Dates: start: 19950117, end: 19950117
  48. FLUIMUCIL [Suspect]
     Active Substance: ACETYLCYSTEINE
     Dosage: 3 DOSAGE FORM, QD (1 DF,QD)
     Route: 048
     Dates: start: 19950120, end: 19950331
  49. IMUREK                             /00001501/ [Suspect]
     Active Substance: AZATHIOPRINE
     Indication: SCLERODERMA
     Dosage: UNK
     Route: 048
     Dates: start: 19950113, end: 19950116
  50. ERYPO                              /00928301/ [Suspect]
     Active Substance: ERYTHROPOIETIN
     Dosage: 2000 INTERNATIONAL UNIT, QD
     Route: 058
     Dates: start: 19950117, end: 19950117
  51. ERYTHROPOIETIN HUMAN [Suspect]
     Active Substance: ERYTHROPOIETIN
     Indication: ANAEMIA
     Dosage: 2000 INTERNATIONAL UNIT, QD
     Route: 058
     Dates: start: 19950303, end: 19950303
  52. TRENTAL [Suspect]
     Active Substance: PENTOXIFYLLINE
     Dosage: 400 MILLIGRAM, QD
     Route: 048
     Dates: start: 19950117, end: 19950124
  53. TAZOBAC  SOLUTION FOR INJECTION [Suspect]
     Active Substance: PIPERACILLIN SODIUM\TAZOBACTAM SODIUM
     Indication: INFECTION
     Dosage: 2 DOSAGE FORM, QD (1 DF, QD)
     Route: 042
     Dates: end: 19950101
  54. TAZOBAC  SOLUTION FOR INJECTION [Suspect]
     Active Substance: PIPERACILLIN SODIUM\TAZOBACTAM SODIUM
     Dosage: 1 DOSAGE FORM, QD
     Route: 042
  55. PURSENNIDE                         /00571901/ [Suspect]
     Active Substance: SENNOSIDES A AND B
     Indication: CONSTIPATION
     Dosage: UNK
     Route: 048
     Dates: start: 19950113, end: 19950114
  56. ADALAT [Concomitant]
     Active Substance: NIFEDIPINE
     Indication: HYPERTENSION
     Dosage: 1 DOSAGE FORM, QD
     Route: 048
     Dates: start: 19941228, end: 19941228
  57. ANTRA                              /00661201/ [Concomitant]
     Active Substance: OMEPRAZOLE
     Indication: CONSTIPATION
     Dosage: 2 DOSAGE FORM, QD
     Route: 048
     Dates: start: 19950118, end: 19950124
  58. SODIUM CITRATE. [Concomitant]
     Active Substance: SODIUM CITRATE
     Dosage: 4 DOSAGE FORM, QD
     Route: 048
     Dates: start: 19950119, end: 19950331
  59. MONO-EMBOLEX [Concomitant]
     Active Substance: CERTOPARIN SODIUM
     Indication: THROMBOSIS PROPHYLAXIS
     Dosage: 1 DOSAGE FORM, QD
     Route: 058
     Dates: end: 19950331
  60. CLEMASTINE [Concomitant]
     Active Substance: CLEMASTINE
     Indication: HYPERSENSITIVITY
     Dosage: UNK
     Route: 042
     Dates: start: 19950117, end: 19950117
  61. AUGMENTAN                          /00756801/ [Suspect]
     Active Substance: AMOXICILLIN\CLAVULANATE POTASSIUM
     Dosage: 1 DOSAGE FORM, QD
     Route: 048
     Dates: start: 19950117, end: 19950117
  62. ACETYLSALICYLIC ACID [Suspect]
     Active Substance: ASPIRIN
     Indication: ARRHYTHMIA
     Dosage: 1 DOSAGE FORM, QD
     Route: 048
     Dates: end: 19950331
  63. FLUIMUCIL [Suspect]
     Active Substance: ACETYLCYSTEINE
     Dosage: 3 DOSAGE FORM, QD
     Route: 048
     Dates: start: 19950117, end: 19950118
  64. ERYPO                              /00928301/ [Suspect]
     Active Substance: ERYTHROPOIETIN
     Dosage: 2000 INTERNATIONAL UNIT, QD
     Route: 058
     Dates: start: 19950105, end: 19950105
  65. ERYTHROPOIETIN HUMAN [Suspect]
     Active Substance: ERYTHROPOIETIN
     Dosage: 2000 INTERNATIONAL UNIT, QD
     Route: 058
     Dates: start: 19950114, end: 19950114
  66. TRENTAL [Suspect]
     Active Substance: PENTOXIFYLLINE
     Indication: CARDIOVASCULAR DISORDER
     Dosage: 1200 MILLIGRAM, QD (400 MG QW)
     Route: 048
     Dates: start: 19950117, end: 19950124
  67. AMOXICILLIN. [Suspect]
     Active Substance: AMOXICILLIN
     Indication: INFECTION
     Dosage: 1 DOSAGE FORM
     Route: 048
     Dates: start: 19950117, end: 19950117
  68. CLAVULANIC ACID [Suspect]
     Active Substance: CLAVULANIC ACID
     Indication: INFECTION
     Dosage: 1 DOSAGE FORM
     Route: 048
     Dates: start: 19950117, end: 19950117
  69. NEUPOGEN [Concomitant]
     Active Substance: FILGRASTIM
     Indication: LEUKOPENIA
     Dosage: UNK
     Route: 058
     Dates: start: 19950124, end: 19950124
  70. SODIUM CITRATE. [Concomitant]
     Active Substance: SODIUM CITRATE
     Dosage: 4 DOSAGE FORM, QD
     Route: 048
     Dates: start: 19950119, end: 19950119
  71. PEPDUL [Concomitant]
     Active Substance: FAMOTIDINE
     Indication: ULCER
     Dosage: 1 DOSAGE FORM, QD
     Route: 048
     Dates: end: 19950117
  72. ISOPTIN [Concomitant]
     Active Substance: VERAPAMIL HYDROCHLORIDE
     Indication: ARRHYTHMIA
     Dosage: 3 DOSAGE FORM, QD
     Route: 048
     Dates: start: 19941228, end: 19941228
  73. ERYTHROPOIETIN HUMAN [Suspect]
     Active Substance: ERYTHROPOIETIN
     Dosage: 2000 INTERNATIONAL UNIT, QD
     Route: 058
     Dates: start: 19950105, end: 19950105

REACTIONS (15)
  - Brain injury [Fatal]
  - Rash [Unknown]
  - Off label use [Fatal]
  - Pruritus [Unknown]
  - Lymphocytosis [Unknown]
  - Toxic epidermal necrolysis [Fatal]
  - Pneumonia [Unknown]
  - Blood creatinine increased [Unknown]
  - Stevens-Johnson syndrome [Not Recovered/Not Resolved]
  - Renal failure [Fatal]
  - Blood urea increased [Unknown]
  - Leukocytosis [Unknown]
  - Intentional product misuse [Unknown]
  - Blister [Unknown]
  - Blood lactate dehydrogenase increased [Unknown]

NARRATIVE: CASE EVENT DATE: 19950117
